FAERS Safety Report 7077985-0 (Version None)
Quarter: 2010Q4

REPORT INFORMATION
  Report Type: 
  Country: None (occurrence: None)
  Receive Date: 20101101
  Receipt Date: 20101021
  Transmission Date: 20110411
  Serious: Yes (Hospitalization, Other)
  Sender: FDA-Public Use
  Company Number: US-AMGEN-KDC440300

PATIENT
  Age: 69 Year
  Sex: Male

DRUGS (3)
  1. ETANERCEPT [Suspect]
     Indication: GRAFT VERSUS HOST DISEASE
     Dosage: UNK UNK, UNK
     Dates: start: 20100618
  2. STEROID ANTIBACTERIALS [Concomitant]
  3. SIROLIMUS [Concomitant]

REACTIONS (1)
  - CYSTITIS HAEMORRHAGIC [None]
